FAERS Safety Report 20178343 (Version 3)
Quarter: 2021Q4

REPORT INFORMATION
  Report Type: Report from Study
  Country: RO (occurrence: RO)
  Receive Date: 20211213
  Receipt Date: 20211222
  Transmission Date: 20220303
  Serious: Yes (Hospitalization, Other)
  Sender: FDA-Public Use
  Company Number: RO-ABBVIE-21K-135-4194498-00

PATIENT
  Age: 85 Year
  Sex: Male

DRUGS (2)
  1. CARBIDOPA\LEVODOPA [Suspect]
     Active Substance: CARBIDOPA\LEVODOPA
     Indication: Parkinson^s disease
     Dosage: DM 6.00, DC 3.80, ED 1.60, NRED 0; DMN 0.00, DCN 0.00, EDN 0.00, NREDN 0.
     Route: 050
     Dates: start: 20180827, end: 20211209
  2. CARBIDOPA\LEVODOPA [Suspect]
     Active Substance: CARBIDOPA\LEVODOPA

REACTIONS (6)
  - Unintentional medical device removal [Recovering/Resolving]
  - Gastric mucosal lesion [Recovering/Resolving]
  - Upper gastrointestinal haemorrhage [Recovering/Resolving]
  - Gastric ulcer [Recovering/Resolving]
  - Fall [Recovered/Resolved]
  - Haematemesis [Recovering/Resolving]

NARRATIVE: CASE EVENT DATE: 20211208
